FAERS Safety Report 21931787 (Version 2)
Quarter: 2023Q1

REPORT INFORMATION
  Report Type: Spontaneous
  Country: US (occurrence: US)
  Receive Date: 20230131
  Receipt Date: 20230210
  Transmission Date: 20230418
  Serious: No
  Sender: FDA-Public Use
  Company Number: US-LUPIN PHARMACEUTICALS INC.-2023-00532

PATIENT

DRUGS (5)
  1. RIFAMPIN [Suspect]
     Active Substance: RIFAMPIN
     Indication: Tuberculosis
     Dosage: 2 DOSAGE FORM, QD (2 CAPSULES ONCE DAILY BY MOUTH)
     Route: 048
     Dates: start: 20221111
  2. RIFAMPIN [Suspect]
     Active Substance: RIFAMPIN
     Dosage: 2 DOSAGE FORM, QD (2 CAPSULES ONCE DAILY BY MOUTH)
     Route: 048
     Dates: start: 20221229
  3. RIFAMPIN [Suspect]
     Active Substance: RIFAMPIN
     Dosage: 2 DOSAGE FORM, QD (2 CAPSULES ONCE DAILY BY MOUTH)
     Route: 048
     Dates: start: 20230105, end: 20230120
  4. ISONIAZID [Concomitant]
     Active Substance: ISONIAZID
     Indication: Extrapulmonary tuberculosis
     Dosage: 300 MG, QD
     Route: 065
  5. VITAMIN B6 [Concomitant]
     Active Substance: PYRIDOXINE HYDROCHLORIDE
     Indication: Extrapulmonary tuberculosis
     Dosage: 50 MG, QD
     Route: 065

REACTIONS (2)
  - Recalled product administered [Unknown]
  - No adverse event [Unknown]
